FAERS Safety Report 8580922-0 (Version None)
Quarter: 2012Q3

REPORT INFORMATION
  Report Type: 
  Country: None (occurrence: None)
  Receive Date: 20120726
  Receipt Date: 20120628
  Transmission Date: 20120928
  Serious: No
  Sender: FDA-Public Use
  Company Number: 1207ITA001655

PATIENT
  Age: 72 Year
  Sex: Female

DRUGS (8)
  1. GLUCOBAY [Concomitant]
  2. CEDAX [Suspect]
     Indication: BRONCHITIS
     Dosage: 400 MG, QD ORAL
     Route: 048
     Dates: start: 20120410, end: 20120411
  3. LOSARTAN POTASSIUM [Concomitant]
  4. EZETIMIBE/SIMVASTATIN [Concomitant]
  5. LASIX [Concomitant]
  6. LANSOPRAZOLE [Concomitant]
  7. METFONORM (METFORMIN HYDROCHLORIDE) [Concomitant]
  8. LYRICA [Concomitant]

REACTIONS (1)
  - PRURITUS GENERALISED [None]
